FAERS Safety Report 16698898 (Version 1)
Quarter: 2019Q3

REPORT INFORMATION
  Report Type: Spontaneous
  Country: US (occurrence: US)
  Receive Date: 20190813
  Receipt Date: 20190813
  Transmission Date: 20191004
  Serious: No
  Sender: FDA-Public Use
  Company Number: US-PERRIGO-18US008208

PATIENT
  Age: 68 Year
  Sex: Male
  Weight: 66.21 kg

DRUGS (3)
  1. LORATADINE. [Suspect]
     Active Substance: LORATADINE
     Indication: NASAL CONGESTION
     Dosage: 10 MG, PRN
     Route: 048
     Dates: start: 2013, end: 20180731
  2. LORATADINE. [Suspect]
     Active Substance: LORATADINE
     Indication: SEASONAL ALLERGY
  3. OMEPRAZOLE. [Concomitant]
     Active Substance: OMEPRAZOLE
     Indication: GASTROOESOPHAGEAL REFLUX DISEASE
     Dosage: UNK
     Route: 065
     Dates: start: 1996

REACTIONS (2)
  - Drug effective for unapproved indication [Recovered/Resolved]
  - Paranasal sinus hyposecretion [Recovered/Resolved]

NARRATIVE: CASE EVENT DATE: 2013
